FAERS Safety Report 24878075 (Version 2)
Quarter: 2025Q2

REPORT INFORMATION
  Report Type: Spontaneous
  Country: US (occurrence: US)
  Receive Date: 20250123
  Receipt Date: 20250521
  Transmission Date: 20250716
  Serious: No
  Sender: ELI LILLY AND COMPANY
  Company Number: US-ELI_LILLY_AND_COMPANY-US202501015713

PATIENT
  Age: 62 Year
  Sex: Male

DRUGS (12)
  1. BASAGLAR [Suspect]
     Active Substance: INSULIN GLARGINE
     Indication: Product used for unknown indication
     Route: 065
  2. BASAGLAR [Suspect]
     Active Substance: INSULIN GLARGINE
     Indication: Product used for unknown indication
     Route: 065
  3. BASAGLAR [Suspect]
     Active Substance: INSULIN GLARGINE
     Indication: Product used for unknown indication
     Route: 065
  4. BASAGLAR [Suspect]
     Active Substance: INSULIN GLARGINE
     Indication: Product used for unknown indication
     Route: 065
  5. BASAGLAR [Suspect]
     Active Substance: INSULIN GLARGINE
     Route: 065
  6. BASAGLAR [Suspect]
     Active Substance: INSULIN GLARGINE
     Route: 065
  7. BASAGLAR [Suspect]
     Active Substance: INSULIN GLARGINE
     Route: 065
  8. BASAGLAR [Suspect]
     Active Substance: INSULIN GLARGINE
     Route: 065
  9. BASAGLAR [Suspect]
     Active Substance: INSULIN GLARGINE
     Route: 065
  10. BASAGLAR [Suspect]
     Active Substance: INSULIN GLARGINE
     Route: 065
  11. BASAGLAR [Suspect]
     Active Substance: INSULIN GLARGINE
     Route: 065
  12. BASAGLAR [Suspect]
     Active Substance: INSULIN GLARGINE
     Route: 065

REACTIONS (2)
  - Injury associated with device [Unknown]
  - Cough [Unknown]
